FAERS Safety Report 9789953 (Version 1)
Quarter: 2013Q4

REPORT INFORMATION
  Report Type: Spontaneous
  Country: AU (occurrence: None)
  Receive Date: 20131227
  Receipt Date: 20131227
  Transmission Date: 20140711
  Serious: Yes (Other)
  Sender: FDA-Public Use
  Company Number: 2013000381

PATIENT
  Sex: Female

DRUGS (3)
  1. ACEON (PERINDOPRIL ERBUMINE) TABLET [Suspect]
     Indication: PRODUCT USED FOR UNKNOWN INDICATION
  2. RASTINON (TOLBUTAMIDE) [Concomitant]
  3. SERAPAX (OXAZEPAM) [Concomitant]

REACTIONS (4)
  - Dyspnoea [None]
  - Lacrimal disorder [None]
  - Rhinitis [None]
  - Angioedema [None]
